FAERS Safety Report 4503637-4 (Version None)
Quarter: 2004Q4

REPORT INFORMATION
  Report Type: 
  Country: None (occurrence: None)
  Receive Date: 20041115
  Receipt Date: 20041102
  Transmission Date: 20050328
  Serious: Yes (Death, Hospitalization)
  Sender: FDA-Public Use
  Company Number: F01200403200

PATIENT
  Age: 72 Year
  Sex: Female

DRUGS (5)
  1. OXALIPLATIN - SOLUTION - 130 MG/M2 [Suspect]
     Indication: COLON CANCER METASTATIC
     Dosage: 250 MG Q3W INTRAVENOUS NOS
     Route: 042
     Dates: start: 20031205, end: 20031205
  2. XELODA [Suspect]
     Dosage: 3300 MG FROM D2 TO D15, Q3W ORAL
     Route: 048
     Dates: start: 20031206, end: 20031214
  3. OMEPRAZOLE [Concomitant]
  4. ONDANSETRON [Concomitant]
  5. DEXAMETHASONE [Concomitant]

REACTIONS (12)
  - ANAEMIA [None]
  - ANOREXIA [None]
  - DIARRHOEA [None]
  - HYPOTENSION [None]
  - METABOLIC ACIDOSIS [None]
  - PARAESTHESIA [None]
  - PARAESTHESIA ORAL [None]
  - PETECHIAE [None]
  - RENAL FAILURE ACUTE [None]
  - STOMATITIS [None]
  - TRISMUS [None]
  - VOMITING [None]
